FAERS Safety Report 7492527-3 (Version None)
Quarter: 2011Q2

REPORT INFORMATION
  Report Type: 
  Country: None (occurrence: None)
  Receive Date: 20110519
  Receipt Date: 20110513
  Transmission Date: 20111010
  Serious: Yes (Other)
  Sender: FDA-Public Use
  Company Number: US-PFIZER INC-2009188126

PATIENT
  Sex: Female

DRUGS (2)
  1. TEGRETOL [Interacting]
     Indication: TRIGEMINAL NEURALGIA
  2. NORVASC [Suspect]

REACTIONS (3)
  - TRIGEMINAL NEURALGIA [None]
  - DRUG INEFFECTIVE [None]
  - DRUG INTERACTION [None]
